FAERS Safety Report 9941657 (Version 1)
Quarter: 2014Q1

REPORT INFORMATION
  Report Type: Report from Study
  Country: US (occurrence: US)
  Receive Date: 20140303
  Receipt Date: 20140303
  Transmission Date: 20141002
  Serious: No
  Sender: FDA-Public Use
  Company Number: US-ABBVIE-13P-163-1043607-00

PATIENT
  Age: 44 Year
  Sex: Female

DRUGS (3)
  1. HUMIRA [Suspect]
     Indication: SPONDYLITIS
     Dates: start: 201103
  2. NAPROXEN [Concomitant]
     Indication: PAIN
  3. ADALAT [Concomitant]
     Indication: VASCULITIS

REACTIONS (2)
  - Skin lesion [Not Recovered/Not Resolved]
  - Injection site pain [Not Recovered/Not Resolved]
